FAERS Safety Report 12653896 (Version 2)
Quarter: 2016Q3

REPORT INFORMATION
  Report Type: Spontaneous
  Country: US (occurrence: US)
  Receive Date: 20160816
  Receipt Date: 20160928
  Transmission Date: 20161109
  Serious: Yes (Hospitalization)
  Sender: FDA-Public Use
  Company Number: US-ASTRAZENECA-2016SE86902

PATIENT
  Age: 855 Month
  Sex: Male
  Weight: 136.1 kg

DRUGS (3)
  1. OTHER PILLS [Concomitant]
     Dosage: IN THE MORNING,ONCE A DAY
  2. TUDORZA PRESSAIR [Suspect]
     Active Substance: ACLIDINIUM BROMIDE
     Indication: CHRONIC OBSTRUCTIVE PULMONARY DISEASE
     Dosage: 400MCG, 1 PUFF TWICE A DAY
     Route: 055
     Dates: start: 2012
  3. ADVAIR HFA [Concomitant]
     Active Substance: FLUTICASONE PROPIONATE\SALMETEROL XINAFOATE
     Indication: CHRONIC OBSTRUCTIVE PULMONARY DISEASE
     Dosage: 250/50MCG , EVERY 12 HOURS
     Route: 055
     Dates: start: 2012

REACTIONS (4)
  - Ulcer haemorrhage [Unknown]
  - Device issue [Unknown]
  - Cerebrovascular accident [Unknown]
  - Myasthenia gravis [Unknown]

NARRATIVE: CASE EVENT DATE: 201509
